FAERS Safety Report 10789479 (Version 3)
Quarter: 2015Q2

REPORT INFORMATION
  Report Type: Report from Study
  Country: FI (occurrence: FI)
  Receive Date: 20150212
  Receipt Date: 20150505
  Transmission Date: 20150821
  Serious: Yes (Hospitalization)
  Sender: FDA-Public Use
  Company Number: FI-CELGENE-FIN-2015020864

PATIENT
  Age: 64 Year
  Sex: Female

DRUGS (5)
  1. PREVENAR [Suspect]
     Active Substance: PNEUMOCOCCAL 7-VALENT CONJUGATE VACCINE (DIPHTHERIA CRM197 PROTEIN)
     Indication: IMMUNISATION
     Dosage: 40 MILLIGRAM
     Route: 065
     Dates: start: 20140912, end: 20140912
  2. DT-HIB VACCINATION [Concomitant]
     Indication: IMMUNISATION
     Route: 065
     Dates: start: 20140912, end: 20140912
  3. REVLIMID [Suspect]
     Active Substance: LENALIDOMIDE
     Indication: PLASMA CELL MYELOMA
     Route: 048
     Dates: start: 20140505, end: 20140914
  4. REVLIMID [Suspect]
     Active Substance: LENALIDOMIDE
     Route: 048
     Dates: start: 20141006
  5. PREVENAR [Suspect]
     Active Substance: PNEUMOCOCCAL 7-VALENT CONJUGATE VACCINE (DIPHTHERIA CRM197 PROTEIN)
     Dosage: 1500 MILLIGRAM
     Route: 065
     Dates: start: 20140918, end: 20140918

REACTIONS (3)
  - Acute disseminated encephalomyelitis [Recovered/Resolved with Sequelae]
  - Vaccination complication [Recovered/Resolved with Sequelae]
  - Herpes zoster [Recovered/Resolved]

NARRATIVE: CASE EVENT DATE: 20140921
